FAERS Safety Report 4076188 (Version 6)
Quarter: 2019Q1

REPORT INFORMATION
  Report Type: Spontaneous
  Country: JP (occurrence: JP)
  Receive Date: 20040130
  Receipt Date: 20190213
  Transmission Date: 20190418
  Serious: Yes (Death, Hospitalization, Other)
  Sender: FDA-Public Use
  Company Number: PHBS2003JP07309

PATIENT
  Age: 80 Year
  Sex: Male

DRUGS (12)
  1. HYDREA [Suspect]
     Active Substance: HYDROXYUREA
     Indication: PRODUCT USED FOR UNKNOWN INDICATION
     Dosage: UNK, UNK
     Route: 048
     Dates: end: 20040107
  2. PRIMPERAN [Concomitant]
     Active Substance: METOCLOPRAMIDE HYDROCHLORIDE
     Indication: PRODUCT USED FOR UNKNOWN INDICATION
     Dosage: UNK
     Route: 048
     Dates: start: 20030226, end: 20030320
  3. FENTANYL. [Concomitant]
     Active Substance: FENTANYL
     Indication: PRODUCT USED FOR UNKNOWN INDICATION
     Dosage: 2.5 MG, QD
     Route: 061
     Dates: start: 20030226, end: 20030313
  4. HYDREA [Suspect]
     Active Substance: HYDROXYUREA
     Dosage: UNK, UNK
     Route: 048
     Dates: start: 20040108
  5. GLIVEC [Suspect]
     Active Substance: IMATINIB MESYLATE
     Dosage: 100 MG, QD
     Route: 048
     Dates: start: 20040109, end: 20040114
  6. GLIVEC [Suspect]
     Active Substance: IMATINIB MESYLATE
     Dosage: 100 MG, BID
     Route: 048
     Dates: start: 20040115, end: 20040118
  7. MOBIC [Concomitant]
     Active Substance: MELOXICAM
     Indication: PRODUCT USED FOR UNKNOWN INDICATION
     Dosage: 10 MG, QD
     Route: 048
     Dates: start: 20030306, end: 20030320
  8. GLIVEC [Suspect]
     Active Substance: IMATINIB MESYLATE
     Indication: BLAST CRISIS IN MYELOGENOUS LEUKAEMIA
     Dosage: 100 MG, QID
     Route: 048
     Dates: start: 20030226, end: 20030303
  9. GLIVEC [Suspect]
     Active Substance: IMATINIB MESYLATE
     Dosage: 100 MG, 6QD
     Route: 048
     Dates: start: 20030304, end: 20030603
  10. PREDONINE [Concomitant]
     Active Substance: PREDNISOLONE
     Indication: PRODUCT USED FOR UNKNOWN INDICATION
     Dosage: 10 MG, QD
     Route: 048
     Dates: start: 20030226, end: 20030320
  11. GLIVEC [Suspect]
     Active Substance: IMATINIB MESYLATE
     Dosage: 100 MG, QID
     Route: 048
     Dates: start: 20040119, end: 20040124
  12. OMEPRAL [Concomitant]
     Active Substance: OMEPRAZOLE
     Indication: PRODUCT USED FOR UNKNOWN INDICATION
     Dosage: UNK
     Route: 048
     Dates: start: 20030306, end: 20030316

REACTIONS (13)
  - Decreased appetite [Unknown]
  - Feeling abnormal [Recovered/Resolved]
  - Vomiting [Recovered/Resolved]
  - Skin discolouration [Not Recovered/Not Resolved]
  - Rash generalised [Not Recovered/Not Resolved]
  - Nausea [Unknown]
  - Dizziness [Unknown]
  - Rash erythematous [Recovered/Resolved]
  - Interstitial lung disease [Recovered/Resolved]
  - Fatigue [Unknown]
  - Interstitial lung disease [Fatal]
  - Skin exfoliation [Not Recovered/Not Resolved]
  - Oedema peripheral [Recovered/Resolved]

NARRATIVE: CASE EVENT DATE: 200303
